FAERS Safety Report 8182497 (Version 4)
Quarter: 2013Q2

REPORT INFORMATION
  Report Type: Report from Study
  Country: US (occurrence: US)
  Receive Date: 20111015
  Receipt Date: 20130523
  Transmission Date: 20140414
  Serious: Yes (Hospitalization, Other)
  Sender: FDA-Public Use
  Company Number: US-ROCHE-1002399

PATIENT
  Age: 56 Year
  Sex: Male
  Weight: 79.4 kg

DRUGS (22)
  1. BLINDED TOCILIZUMAB [Suspect]
     Indication: RHEUMATOID ARTHRITIS
     Dosage: RECENT DOSE PRIOR SAE WAS ON 28/SEP/2011
     Route: 042
     Dates: start: 20110511
  2. BLINDED TOCILIZUMAB [Suspect]
     Indication: RHEUMATOID ARTHRITIS
     Dosage: RECENT DOSE PRIOR SAE WAS ON 28/SEP/2011
     Route: 058
     Dates: start: 20110511
  3. METHOTREXATE [Concomitant]
     Indication: RHEUMATOID ARTHRITIS
     Route: 048
     Dates: start: 20110114
  4. PREDNISONE [Concomitant]
     Indication: RHEUMATOID ARTHRITIS
     Route: 048
     Dates: start: 20110113
  5. LIPITOR [Concomitant]
     Route: 048
     Dates: start: 2009
  6. LORTAB [Concomitant]
     Indication: RHEUMATOID ARTHRITIS
     Route: 048
     Dates: start: 2008
  7. SPIRIVA [Concomitant]
     Route: 048
     Dates: start: 2009
  8. ASPIRIN [Concomitant]
     Route: 048
     Dates: start: 201002
  9. PROMETHAZINE [Concomitant]
     Route: 048
     Dates: start: 201012
  10. FOLIC ACID [Concomitant]
     Indication: RHEUMATOID ARTHRITIS
     Route: 048
     Dates: start: 20110114
  11. ANCEF [Concomitant]
     Route: 042
     Dates: start: 20111004, end: 20111004
  12. DILAUDID [Concomitant]
     Route: 042
     Dates: start: 20111020, end: 20111020
  13. HEPARIN [Concomitant]
     Dosage: 15400 UNIT
     Route: 042
     Dates: start: 20111020, end: 20111020
  14. MORPHINE [Concomitant]
     Route: 042
     Dates: start: 20111019, end: 20111019
  15. PLAVIX [Concomitant]
     Route: 048
     Dates: start: 201110, end: 201111
  16. ERYTHROMYCIN [Concomitant]
     Route: 048
     Dates: start: 201110, end: 201111
  17. PROTONIX [Concomitant]
     Route: 048
     Dates: start: 201110, end: 201111
  18. VERSED [Concomitant]
     Route: 042
     Dates: start: 201110, end: 201110
  19. TOTAL PARENTERAL NUTRITION [Concomitant]
     Route: 042
     Dates: start: 201110
  20. ZOSYN [Concomitant]
     Route: 042
     Dates: start: 200110, end: 201110
  21. ISOVUE 370 [Concomitant]
     Route: 042
     Dates: start: 20111004, end: 20111004
  22. ZANTAC [Concomitant]
     Route: 048
     Dates: start: 20111018, end: 20111018

REACTIONS (3)
  - Peripheral ischaemia [Recovered/Resolved with Sequelae]
  - Post procedural haemorrhage [Recovered/Resolved]
  - Post procedural infection [Recovered/Resolved]
